FAERS Safety Report 5306582-X (Version None)
Quarter: 2007Q2

REPORT INFORMATION
  Report Type: 
  Country: None (occurrence: None)
  Receive Date: 20070424
  Receipt Date: 20070412
  Transmission Date: 20071010
  Serious: Yes (Other)
  Sender: FDA-Public Use
  Company Number: KR-PFIZER INC-2007030108

PATIENT
  Sex: Male

DRUGS (1)
  1. CAVERJECT POWDER, STERILE [Suspect]

REACTIONS (2)
  - ENCEPHALITIS [None]
  - MENINGITIS [None]
